FAERS Safety Report 8498924 (Version 2)
Quarter: 2013Q2

REPORT INFORMATION
  Report Type: Spontaneous
  Country: US (occurrence: None)
  Receive Date: 20120315
  Receipt Date: 20130416
  Transmission Date: 20140414
  Serious: Yes (Hospitalization, Other)
  Sender: FDA-Public Use
  Company Number: 24705

PATIENT
  Age: 74 Year
  Sex: Male
  Weight: 53.07 kg

DRUGS (17)
  1. GLASSIA [Suspect]
     Indication: ALPHA-1 ANTI-TRYPSIN DEFICIENCY
     Dosage: 4500 MG. X2 MONTH, IV
     Route: 042
     Dates: start: 20120831
  2. CHEMOTHERAPY DRUGS [Suspect]
     Indication: LUNG NEOPLASM MALIGNANT
     Route: 042
     Dates: start: 201203, end: 20121106
  3. SYMBICORT [Concomitant]
     Indication: ALPHA-1 ANTI-TRYPSIN DEFICIENCY
  4. SPIRIVA [Concomitant]
     Indication: ALPHA-1 ANTI-TRYPSIN DEFICIENCY
  5. FOLIC ACID [Concomitant]
  6. ZETIA [Concomitant]
  7. PLAVIX [Concomitant]
  8. ASPIRIN [Concomitant]
  9. MORPHINE SULFATE [Concomitant]
  10. HYDROCODONE [Concomitant]
  11. ZOMETA [Concomitant]
  12. AVASTIN [Concomitant]
  13. FLOMAX [Concomitant]
  14. SIMVASTATIN [Concomitant]
  15. DEXAMETHASONE [Concomitant]
  16. PROCHLORPERAZINE [Concomitant]
  17. GLUCOSAMINE [Concomitant]

REACTIONS (4)
  - LUNG NEOPLASM MALIGNANT [None]
  - Weight decreased [None]
  - Blood potassium decreased [None]
  - Dyspnoea [None]
